FAERS Safety Report 6231507-2 (Version None)
Quarter: 2009Q2

REPORT INFORMATION
  Report Type: 
  Country: None (occurrence: None)
  Receive Date: 20090616
  Receipt Date: 20090609
  Transmission Date: 20091009
  Serious: Yes (Other)
  Sender: FDA-Public Use
  Company Number: B0574269A

PATIENT
  Sex: Male

DRUGS (5)
  1. PAXIL [Suspect]
     Indication: DEPRESSION
     Dosage: 20MG PER DAY
     Route: 048
     Dates: start: 20090401
  2. ALCOHOL [Suspect]
  3. DEPAS [Concomitant]
     Indication: ANXIETY
     Route: 048
     Dates: start: 20080401
  4. MYSLEE [Concomitant]
     Indication: INSOMNIA
     Dosage: 10MG PER DAY
     Route: 048
     Dates: start: 20080401
  5. OMEPRAZOLE [Concomitant]
     Route: 048
     Dates: start: 20080401

REACTIONS (1)
  - ABNORMAL BEHAVIOUR [None]
